FAERS Safety Report 12395219 (Version 1)
Quarter: 2016Q2

REPORT INFORMATION
  Report Type: Spontaneous
  Country: US (occurrence: US)
  Receive Date: 20160523
  Receipt Date: 20160523
  Transmission Date: 20160815
  Serious: Yes (Life-Threatening, Hospitalization, Other)
  Sender: FDA-Public Use
  Company Number: US-BAYER-2016-091415

PATIENT
  Sex: Male

DRUGS (1)
  1. ALEVE [Suspect]
     Active Substance: NAPROXEN SODIUM
     Indication: PROCEDURAL PAIN
     Dosage: 2 DF, BID
     Route: 048

REACTIONS (6)
  - Sepsis [None]
  - Surgery [None]
  - Gastric ulcer [None]
  - Product use issue [None]
  - Apparent death [None]
  - Gastrointestinal infection [None]

NARRATIVE: CASE EVENT DATE: 20160508
